FAERS Safety Report 10452011 (Version 2)
Quarter: 2014Q3

REPORT INFORMATION
  Report Type: Spontaneous
  Country: FR (occurrence: FR)
  Receive Date: 20140915
  Receipt Date: 20140924
  Transmission Date: 20150326
  Serious: Yes (Hospitalization)
  Sender: FDA-Public Use
  Company Number: FR-ACCORD-025834

PATIENT
  Age: 68 Year
  Sex: Male

DRUGS (11)
  1. ADVAGRAF [Suspect]
     Active Substance: TACROLIMUS
     Indication: PRODUCT USED FOR UNKNOWN INDICATION
     Route: 048
     Dates: start: 2012
  2. WELLVONE [Concomitant]
     Active Substance: ATOVAQUONE
  3. FLUOROURACIL ACCORD [Suspect]
     Active Substance: FLUOROURACIL
     Indication: PRODUCT USED FOR UNKNOWN INDICATION
     Dosage: FOLFOX PROTOCOL?SECOND COURSE
     Route: 042
     Dates: start: 20140721, end: 20140723
  4. CORTANCYL [Concomitant]
     Active Substance: PREDNISONE
  5. PLAVIX [Concomitant]
     Active Substance: CLOPIDOGREL BISULFATE
  6. AMLODIPINE [Concomitant]
     Active Substance: AMLODIPINE BESYLATE
  7. ATORVASTATIN [Concomitant]
     Active Substance: ATORVASTATIN
  8. OXALIPLATIN ACCORD [Suspect]
     Active Substance: OXALIPLATIN
     Indication: PRODUCT USED FOR UNKNOWN INDICATION
     Dosage: FOLFOX PROTOCOL?SECOND COURSE
     Route: 042
     Dates: start: 20140721
  9. EMEND [Suspect]
     Active Substance: APREPITANT
     Indication: PRODUCT USED FOR UNKNOWN INDICATION
     Route: 048
     Dates: start: 20140721, end: 20140722
  10. KARDEGIC [Concomitant]
     Active Substance: ASPIRIN LYSINE
  11. ATENOLOL/ATENOLOL HYDROCHLORIDE [Concomitant]

REACTIONS (2)
  - Confusional state [Unknown]
  - Encephalopathy [Recovered/Resolved]

NARRATIVE: CASE EVENT DATE: 20140723
